FAERS Safety Report 5504619-6 (Version None)
Quarter: 2007Q4

REPORT INFORMATION
  Report Type: 
  Country: None (occurrence: None)
  Receive Date: 20071101
  Receipt Date: 20071011
  Transmission Date: 20080405
  Serious: No
  Sender: FDA-Public Use
  Company Number: US-BOEHRINGER INGELHEIM PHARMACEUTICALS, INC.-2007-BP-22598BP

PATIENT
  Sex: Male
  Weight: 120 kg

DRUGS (2)
  1. MOBIC [Suspect]
     Indication: OSTEOARTHRITIS
     Route: 048
  2. MOBIC [Suspect]
     Route: 048

REACTIONS (2)
  - DRUG INEFFECTIVE [None]
  - GASTROINTESTINAL DISORDER [None]
